APPROVED DRUG PRODUCT: PROMETHAZINE HYDROCHLORIDE AND DEXTROMETHORPHAN HYDROBROMIDE
Active Ingredient: DEXTROMETHORPHAN HYDROBROMIDE; PROMETHAZINE HYDROCHLORIDE
Strength: 15MG/5ML;6.25MG/5ML
Dosage Form/Route: SYRUP;ORAL
Application: A040027 | Product #001
Applicant: HIKMA PHARMACEUTICALS USA INC
Approved: Jul 31, 1996 | RLD: No | RS: No | Type: DISCN